FAERS Safety Report 7810399-1 (Version None)
Quarter: 2011Q4

REPORT INFORMATION
  Report Type: 
  Country: None (occurrence: None)
  Receive Date: 20111012
  Receipt Date: 20110812
  Transmission Date: 20120403
  Serious: Yes (Other)
  Sender: FDA-Public Use
  Company Number: US-ABBOTT-11P-163-0863191-00

PATIENT
  Age: 10 Month
  Sex: Male
  Weight: 11.3 kg

DRUGS (2)
  1. TESTOSTERONE [Suspect]
     Indication: HYPOGONADISM MALE
     Dosage: 200 MG DAILY
     Route: 061
     Dates: start: 20060401, end: 20060501
  2. TESTOSTERONE [Suspect]
     Indication: HYPOGONADISM
     Dosage: GEL, 150 MG DAILY
     Route: 061
     Dates: start: 20060208, end: 20060401

REACTIONS (7)
  - PENIS DISORDER [None]
  - BLOOD ANDROSTENEDIONE INCREASED [None]
  - PRECOCIOUS PUBERTY [None]
  - SKIN HYPERPIGMENTATION [None]
  - HAIR GROWTH ABNORMAL [None]
  - ACCIDENTAL EXPOSURE [None]
  - BLOOD TESTOSTERONE INCREASED [None]
